FAERS Safety Report 24879088 (Version 1)
Quarter: 2025Q1

REPORT INFORMATION
  Report Type: Spontaneous
  Country: US (occurrence: US)
  Receive Date: 20250123
  Receipt Date: 20250123
  Transmission Date: 20250409
  Serious: No
  Sender: BAXTER
  Company Number: US-BAXTER-2025BAX010360

PATIENT

DRUGS (2)
  1. INSULIN NOS [Suspect]
     Active Substance: INSULIN NOS
     Route: 042
  2. INSULIN NOS [Suspect]
     Active Substance: INSULIN NOS
     Route: 058

REACTIONS (2)
  - Drug ineffective [Recovering/Resolving]
  - Device kink [Unknown]
